FAERS Safety Report 4280240-5 (Version None)
Quarter: 2004Q1

REPORT INFORMATION
  Report Type: 
  Country: None (occurrence: None)
  Receive Date: 20040126
  Receipt Date: 20040108
  Transmission Date: 20041129
  Serious: Yes (Hospitalization)
  Sender: FDA-Public Use
  Company Number: 170765

PATIENT
  Age: 41 Year
  Sex: Male
  Weight: 64.4108 kg

DRUGS (2)
  1. AVONEX [Suspect]
     Indication: MULTIPLE SCLEROSIS
     Dosage: 30 MCG QW IM
     Route: 030
     Dates: start: 20030101, end: 20030201
  2. EFFEXOR [Concomitant]

REACTIONS (8)
  - ARTERIOPATHIC DISEASE [None]
  - BIOPSY BRAIN ABNORMAL [None]
  - CEREBRAL INFARCTION [None]
  - COMPUTERISED TOMOGRAM ABNORMAL [None]
  - FATIGUE [None]
  - LEUKOENCEPHALOPATHY [None]
  - NUCLEAR MAGNETIC RESONANCE IMAGING BRAIN ABNORMAL [None]
  - STAPHYLOCOCCAL INFECTION [None]
